FAERS Safety Report 7995430 (Version 2)
Quarter: 2013Q1

REPORT INFORMATION
  Report Type: Spontaneous
  Country: US (occurrence: None)
  Receive Date: 20110531
  Receipt Date: 20130318
  Transmission Date: 20140127
  Serious: Yes (Hospitalization)
  Sender: FDA-Public Use
  Company Number: 2011-006

PATIENT
  Age: 64 Year
  Sex: Male

DRUGS (8)
  1. DORZOLAMIDE HYDROCHLORIDE [Suspect]
     Indication: GLAUCOMA
     Dosage: ONE DROP
     Dates: start: 20110319
  2. ZOCOR [Concomitant]
  3. LIPITOR [Concomitant]
  4. GLIPIZIDE [Concomitant]
  5. PLAVIX [Concomitant]
  6. ASA [Concomitant]
  7. LASIX [Concomitant]
  8. METAPROLOL [Concomitant]

REACTIONS (1)
  - Anaphylactic reaction [None]
